FAERS Safety Report 8955822 (Version 1)
Quarter: 2012Q4

REPORT INFORMATION
  Report Type: 
  Country: US (occurrence: US)
  Receive Date: 20121210
  Receipt Date: 20121210
  Transmission Date: 20130627
  Serious: Yes (Hospitalization, Other)
  Sender: FDA-Public Use
  Company Number: US-ALEXION PHARMACEUTICALS INC.-A201202319

PATIENT
  Sex: Female

DRUGS (1)
  1. SOLIRIS 300MG [Suspect]
     Indication: PAROXYSMAL NOCTURNAL HAEMOGLOBINURIA
     Dosage: 900 mg, q2w
     Route: 042
     Dates: start: 20120106

REACTIONS (4)
  - Cholecystectomy [Unknown]
  - Haemoglobin decreased [Recovering/Resolving]
  - Abdominal pain [Unknown]
  - Blood urine present [Unknown]
